FAERS Safety Report 6021096-X (Version None)
Quarter: 2008Q4

REPORT INFORMATION
  Report Type: 
  Country: None (occurrence: None)
  Receive Date: 20081229
  Receipt Date: 20081216
  Transmission Date: 20090506
  Serious: Yes (Other)
  Sender: FDA-Public Use
  Company Number: US-PFIZER INC-2008155130

PATIENT
  Sex: Female
  Weight: 136.5 kg

DRUGS (3)
  1. CHANTIX [Suspect]
     Indication: SMOKING CESSATION THERAPY
     Dosage: 0.5 MG, UNK
     Route: 048
     Dates: start: 20080901, end: 20080901
  2. ANTIHYPERTENSIVES [Concomitant]
     Dosage: UNK
  3. ZOLOFT [Concomitant]
     Dosage: UNK

REACTIONS (4)
  - ANTISOCIAL BEHAVIOUR [None]
  - HIGH RISK SEXUAL BEHAVIOUR [None]
  - IRRITABILITY [None]
  - MOOD SWINGS [None]
